FAERS Safety Report 4627500-3 (Version None)
Quarter: 2005Q1

REPORT INFORMATION
  Report Type: 
  Country: None (occurrence: None)
  Receive Date: 20050330
  Receipt Date: 20020409
  Transmission Date: 20050727
  Serious: No
  Sender: FDA-Public Use
  Company Number: 3579

PATIENT
  Age: 70 Year
  Sex: Male

DRUGS (2)
  1. MIDAZOLAM HCL [Suspect]
     Indication: SEDATION
     Dosage: 4.5 MG IT
     Route: 038
  2. BUPIVACAINE [Concomitant]

REACTIONS (5)
  - DELIRIUM [None]
  - DISORIENTATION [None]
  - HEART RATE INCREASED [None]
  - RESTLESSNESS [None]
  - SPEECH DISORDER [None]
